FAERS Safety Report 9382949 (Version 2)
Quarter: 2013Q3

REPORT INFORMATION
  Report Type: Spontaneous
  Country: BR (occurrence: BR)
  Receive Date: 20130703
  Receipt Date: 20130703
  Transmission Date: 20140515
  Serious: Yes (Hospitalization)
  Sender: FDA-Public Use
  Company Number: BR-B.I. PHARMACEUTICALS,INC./RIDGEFIELD-2013-BR-00689BR

PATIENT
  Age: 41 Year
  Sex: Female
  Weight: 83 kg

DRUGS (5)
  1. BEROTEC [Suspect]
     Indication: ASTHMA
     Route: 055
  2. ATROVENT [Suspect]
     Indication: ASTHMA
     Route: 055
  3. FORMOTEROL WITH BUDENOSIDA [Suspect]
     Indication: ASTHMA
     Route: 055
     Dates: start: 20130524, end: 20130527
  4. CAPTOPRIL [Concomitant]
     Indication: HYPERTENSION
     Route: 048
  5. ALENIA [Concomitant]
     Indication: ASTHMA
     Dates: start: 200305, end: 200305

REACTIONS (5)
  - Dyspnoea [Recovered/Resolved]
  - Hypertension [Not Recovered/Not Resolved]
  - Exposure during pregnancy [Recovered/Resolved]
  - Erythema [Not Recovered/Not Resolved]
  - Paraesthesia [Not Recovered/Not Resolved]
